FAERS Safety Report 24299732 (Version 5)
Quarter: 2024Q4

REPORT INFORMATION
  Report Type: Spontaneous
  Country: JP (occurrence: JP)
  Receive Date: 20240909
  Receipt Date: 20241025
  Transmission Date: 20250115
  Serious: Yes (Death, Other)
  Sender: BAUSCH AND LOMB
  Company Number: JP-NORGINE LIMITED-NOR202402419

PATIENT
  Age: 79 Year
  Sex: Male

DRUGS (7)
  1. MOVIPREP [Suspect]
     Active Substance: ASCORBIC ACID\POLYETHYLENE GLYCOL 3350\POTASSIUM CHLORIDE\SODIUM ASCORBATE\SODIUM CHLORIDE\SODIUM SU
     Indication: Colonoscopy
     Dosage: UNK (2 CUPS)
     Route: 048
  2. TRAZODONE HYDROCHLORIDE [Concomitant]
     Active Substance: TRAZODONE HYDROCHLORIDE
     Indication: Product used for unknown indication
  3. QUETIAPINE FUMARATE [Concomitant]
     Active Substance: QUETIAPINE FUMARATE
     Indication: Product used for unknown indication
  4. VALPROATE SODIUM [Concomitant]
     Active Substance: VALPROATE SODIUM
     Indication: Product used for unknown indication
  5. MAGNESIUM OXIDE [Concomitant]
     Active Substance: MAGNESIUM OXIDE
     Indication: Product used for unknown indication
  6. FAMOTIDINE [Concomitant]
     Active Substance: FAMOTIDINE
     Indication: Product used for unknown indication
  7. SODIUM PICOSULFATE MONOHYDRATE [Concomitant]
     Active Substance: SODIUM PICOSULFATE MONOHYDRATE
     Indication: Product used for unknown indication

REACTIONS (9)
  - Aspiration [Fatal]
  - Septic shock [Fatal]
  - Vomiting [Not Recovered/Not Resolved]
  - Cardio-respiratory arrest [Unknown]
  - Blood pressure decreased [Unknown]
  - Procalcitonin increased [Unknown]
  - White blood cell count increased [Unknown]
  - Wrong technique in product usage process [Unknown]
  - Product preparation issue [Unknown]
